FAERS Safety Report 23816925 (Version 2)
Quarter: 2024Q2

REPORT INFORMATION
  Report Type: Report from Study
  Country: RU (occurrence: RU)
  Receive Date: 20240504
  Receipt Date: 20240509
  Transmission Date: 20240716
  Serious: Yes (Other)
  Sender: FDA-Public Use
  Company Number: RU-002147023-NVSC2024RU091826

PATIENT
  Age: 63 Year
  Sex: Female

DRUGS (4)
  1. RIBOCICLIB [Suspect]
     Active Substance: RIBOCICLIB
     Indication: Hormone receptor positive HER2 negative breast cancer
     Dosage: 600 MG, ON DAYS 1- 21, 28-DAY CYCLES
     Route: 048
     Dates: start: 202209
  2. RIBOCICLIB [Suspect]
     Active Substance: RIBOCICLIB
     Dosage: DOSE WAS REDUCED TO 400 MG
     Route: 048
     Dates: start: 2022
  3. RIBOCICLIB [Suspect]
     Active Substance: RIBOCICLIB
     Dosage: 400 MG, ON DAYS 1- 21, 28-DAY CYCLES
     Route: 048
  4. FULVESTRANT [Concomitant]
     Active Substance: FULVESTRANT
     Indication: Product used for unknown indication
     Dosage: UNK
     Route: 065
     Dates: start: 202209

REACTIONS (8)
  - Haematotoxicity [Recovered/Resolved]
  - Neutropenia [Recovered/Resolved]
  - Haematotoxicity [Recovering/Resolving]
  - Neutropenia [Recovering/Resolving]
  - Skin toxicity [Recovered/Resolved]
  - Rash [Recovered/Resolved]
  - Skin toxicity [Recovering/Resolving]
  - Rash [Recovering/Resolving]

NARRATIVE: CASE EVENT DATE: 20220101
